FAERS Safety Report 13336072 (Version 3)
Quarter: 2017Q2

REPORT INFORMATION
  Report Type: Spontaneous
  Country: US (occurrence: US)
  Receive Date: 20170314
  Receipt Date: 20170612
  Transmission Date: 20170830
  Serious: Yes (Hospitalization, Other)
  Sender: FDA-Public Use
  Company Number: US-CELGENEUS-USA-2017033718

PATIENT
  Sex: Female

DRUGS (1)
  1. ABRAXANE [Suspect]
     Active Substance: PACLITAXEL
     Indication: PRODUCT USED FOR UNKNOWN INDICATION
     Route: 041

REACTIONS (9)
  - Fall [Unknown]
  - Loss of consciousness [Unknown]
  - Speech disorder [Unknown]
  - Infection [Unknown]
  - Nausea [Unknown]
  - Depression suicidal [Unknown]
  - Pyrexia [Unknown]
  - Lumbar vertebral fracture [Unknown]
  - Asthenia [Unknown]

NARRATIVE: CASE EVENT DATE: 2017
